FAERS Safety Report 16675446 (Version 2)
Quarter: 2019Q3

REPORT INFORMATION
  Report Type: Spontaneous
  Country: RU (occurrence: RU)
  Receive Date: 20190806
  Receipt Date: 20190806
  Transmission Date: 20191004
  Serious: Yes (Death, Other)
  Sender: FDA-Public Use
  Company Number: PHHY2019RU181891

PATIENT
  Age: 41 Year
  Sex: Male

DRUGS (7)
  1. DEXAMETHASONE. [Suspect]
     Active Substance: DEXAMETHASONE
     Indication: MULTIPLE SCLEROSIS
     Route: 030
  2. GLATIRAMER ACETATE. [Suspect]
     Active Substance: GLATIRAMER ACETATE
     Indication: MULTIPLE SCLEROSIS
     Dosage: UNK
     Route: 065
     Dates: start: 2012
  3. NATALIZUMAB [Suspect]
     Active Substance: NATALIZUMAB
     Dosage: UNK
     Route: 041
     Dates: start: 20171220
  4. NATALIZUMAB [Suspect]
     Active Substance: NATALIZUMAB
     Dosage: 17 INFUSIONS
     Route: 041
     Dates: start: 201608, end: 201712
  5. PREDNISOLONE. [Suspect]
     Active Substance: PREDNISOLONE
     Indication: MULTIPLE SCLEROSIS
     Dosage: UNK
     Route: 065
  6. NATALIZUMAB [Suspect]
     Active Substance: NATALIZUMAB
     Indication: MULTIPLE SCLEROSIS
     Dosage: 10 INFUSION
     Route: 041
     Dates: start: 2012
  7. METHYLPREDNISOLONE. [Suspect]
     Active Substance: METHYLPREDNISOLONE
     Indication: IMMUNE RECONSTITUTION INFLAMMATORY SYNDROME
     Dosage: UNK
     Route: 065

REACTIONS (28)
  - Decreased appetite [Fatal]
  - Dysphonia [Fatal]
  - Dysuria [Fatal]
  - Progressive multifocal leukoencephalopathy [Fatal]
  - Cognitive disorder [Fatal]
  - Aphasia [Fatal]
  - Immune reconstitution inflammatory syndrome [Unknown]
  - Hyperreflexia [Fatal]
  - Body temperature increased [Fatal]
  - Anal incontinence [Fatal]
  - Brain oedema [Fatal]
  - Facial paresis [Fatal]
  - Somnolence [Fatal]
  - Sopor [Fatal]
  - Multiple sclerosis [Unknown]
  - Intention tremor [Fatal]
  - General physical health deterioration [Unknown]
  - Product use in unapproved indication [Unknown]
  - Nystagmus [Fatal]
  - Muscular weakness [Fatal]
  - Apraxia [Fatal]
  - Depressed level of consciousness [Fatal]
  - Disease progression [Fatal]
  - Quadriparesis [Fatal]
  - Urinary incontinence [Fatal]
  - Hemiparesis [Fatal]
  - Urinary retention [Fatal]
  - JC virus infection [Unknown]

NARRATIVE: CASE EVENT DATE: 2015
